FAERS Safety Report 13034339 (Version 1)
Quarter: 2016Q4

REPORT INFORMATION
  Report Type: Spontaneous
  Country: US (occurrence: US)
  Receive Date: 20161216
  Receipt Date: 20161216
  Transmission Date: 20170207
  Serious: Yes (Disabling)
  Sender: FDA-Public Use
  Company Number: None

PATIENT
  Age: 63 Year
  Sex: Female
  Weight: 49.5 kg

DRUGS (5)
  1. CLARITHROMYCIN 500 MG [Suspect]
     Active Substance: CLARITHROMYCIN
     Indication: EAR PAIN
     Route: 048
     Dates: start: 20161213, end: 20161215
  2. HAIR O MEGA VITAMINS [Concomitant]
  3. LOSARTAN. [Concomitant]
     Active Substance: LOSARTAN
  4. CALCIUM WITH D AND MAGNESIUM [Concomitant]
  5. CLARITHROMYCIN 500 MG [Suspect]
     Active Substance: CLARITHROMYCIN
     Indication: MIDDLE EAR EFFUSION
     Route: 048
     Dates: start: 20161213, end: 20161215

REACTIONS (7)
  - Hypoacusis [None]
  - Feeling abnormal [None]
  - Dizziness [None]
  - Vision blurred [None]
  - Incorrect dose administered [None]
  - Tinnitus [None]
  - Impaired driving ability [None]

NARRATIVE: CASE EVENT DATE: 20161214
